FAERS Safety Report 23431672 (Version 1)
Quarter: 2024Q1

REPORT INFORMATION
  Report Type: Spontaneous
  Country: CA (occurrence: CA)
  Receive Date: 20240123
  Receipt Date: 20240123
  Transmission Date: 20240409
  Serious: Yes (Death)
  Sender: FDA-Public Use
  Company Number: CA-SCIEGENP-2024SCLIT00010

PATIENT
  Age: 29 Year
  Sex: Male
  Weight: 89 kg

DRUGS (8)
  1. GABAPENTIN [Suspect]
     Active Substance: GABAPENTIN
     Indication: Product used for unknown indication
     Route: 065
  2. PREGABALIN [Suspect]
     Active Substance: PREGABALIN
     Indication: Product used for unknown indication
     Route: 065
  3. ALPRAZOLAM [Suspect]
     Active Substance: ALPRAZOLAM
     Indication: Product used for unknown indication
     Route: 065
  4. DULOXETINE [Suspect]
     Active Substance: DULOXETINE
     Indication: Product used for unknown indication
     Route: 065
  5. 4-FLUOROISOBUTYRFENTANYL [Suspect]
     Active Substance: 4-FLUOROISOBUTYRFENTANYL
     Indication: Product used for unknown indication
     Route: 065
  6. METHOXYACETYLFENTANYL [Suspect]
     Active Substance: METHOXYACETYLFENTANYL
     Indication: Product used for unknown indication
     Route: 065
  7. DEPROPIONYLFENTANYL [Suspect]
     Active Substance: DEPROPIONYLFENTANYL
     Indication: Product used for unknown indication
     Route: 065
  8. VALERYL FENTANYL [Suspect]
     Active Substance: VALERYL FENTANYL
     Indication: Product used for unknown indication
     Route: 065

REACTIONS (1)
  - Toxicity to various agents [Fatal]
